FAERS Safety Report 7308409-3 (Version None)
Quarter: 2011Q1

REPORT INFORMATION
  Report Type: 
  Country: None (occurrence: None)
  Receive Date: 20110223
  Receipt Date: 20110216
  Transmission Date: 20110831
  Serious: Yes (Hospitalization, Other)
  Sender: FDA-Public Use
  Company Number: US-US-EMD SERONO, INC.-7004606

PATIENT
  Sex: Female

DRUGS (9)
  1. LORTAB [Concomitant]
     Indication: PAIN
  2. GABAPENTIN [Concomitant]
     Indication: CONVULSION
     Dates: end: 20100101
  3. AMANTADINE HCL [Concomitant]
     Indication: FATIGUE
  4. REBIF [Suspect]
     Route: 058
     Dates: start: 20100101, end: 20100101
  5. REBIF [Suspect]
     Route: 058
     Dates: start: 20100101, end: 20100501
  6. REBIF [Suspect]
     Indication: PRIMARY PROGRESSIVE MULTIPLE SCLEROSIS
     Route: 058
     Dates: start: 20100426, end: 20100101
  7. MORPHINE [Concomitant]
     Indication: PAIN
  8. DILANTIN [Concomitant]
     Indication: CONVULSION
  9. BACLOFEN [Concomitant]
     Indication: MUSCLE SPASTICITY

REACTIONS (9)
  - DEHYDRATION [None]
  - GRAND MAL CONVULSION [None]
  - HALLUCINATION [None]
  - LIVER FUNCTION TEST ABNORMAL [None]
  - URINARY TRACT INFECTION [None]
  - CONSTIPATION [None]
  - CONFUSIONAL STATE [None]
  - MULTIPLE SCLEROSIS RELAPSE [None]
  - PAIN [None]
